FAERS Safety Report 20097969 (Version 1)
Quarter: 2021Q4

REPORT INFORMATION
  Report Type: Spontaneous
  Country: US (occurrence: US)
  Receive Date: 20211122
  Receipt Date: 20211122
  Transmission Date: 20220303
  Serious: Yes (Other)
  Sender: FDA-Public Use
  Company Number: US-INCYTE CORPORATION-2021IN010638

PATIENT

DRUGS (2)
  1. JAKAFI [Suspect]
     Active Substance: RUXOLITINIB
     Indication: Hepatitis C
     Dosage: 10 MILLIGRAM, BID
     Route: 048
     Dates: start: 202109
  2. INFLUENZA VIRUS VACCINE [Suspect]
     Active Substance: INFLUENZA VIRUS VACCINE
     Dosage: UNK
     Route: 065

REACTIONS (2)
  - Bell^s palsy [Unknown]
  - Off label use [Unknown]

NARRATIVE: CASE EVENT DATE: 20211001
